FAERS Safety Report 16278350 (Version 2)
Quarter: 2020Q1

REPORT INFORMATION
  Report Type: Spontaneous
  Country: US (occurrence: US)
  Receive Date: 20190506
  Receipt Date: 20200331
  Transmission Date: 20200409
  Serious: Yes (Other)
  Sender: FDA-Public Use
  Company Number: US-ASTRAZENECA-2019SE61659

PATIENT
  Age: 687 Month
  Sex: Male
  Weight: 136.1 kg

DRUGS (67)
  1. PRILOSEC OTC [Suspect]
     Active Substance: OMEPRAZOLE MAGNESIUM
     Route: 048
     Dates: start: 200701, end: 201809
  2. HYDROXYZINE [Concomitant]
     Active Substance: HYDROXYZINE HYDROCHLORIDE
     Indication: SLEEP DISORDER
     Dates: start: 20181024
  3. CLONIDINE. [Concomitant]
     Active Substance: CLONIDINE
  4. PROCTOSOL [Concomitant]
  5. FLUOXETINE [Concomitant]
     Active Substance: FLUOXETINE HYDROCHLORIDE
  6. AMOX TR-K CL [Concomitant]
  7. GENERLAC [Concomitant]
     Active Substance: LACTULOSE
  8. DEXILANT [Suspect]
     Active Substance: DEXLANSOPRAZOLE
     Indication: GASTROOESOPHAGEAL REFLUX DISEASE
     Route: 065
     Dates: start: 20100505, end: 20101105
  9. PREVACID [Suspect]
     Active Substance: LANSOPRAZOLE
     Route: 065
     Dates: start: 200701, end: 201809
  10. HYDROXYZINE [Concomitant]
     Active Substance: HYDROXYZINE HYDROCHLORIDE
     Indication: ANXIETY
     Dates: start: 20181024
  11. CALCIUM [Concomitant]
     Active Substance: CALCIUM
     Indication: BLOOD CALCIUM
     Dates: start: 20181009
  12. LEVOFLOXACIN. [Concomitant]
     Active Substance: LEVOFLOXACIN
  13. TRIAMCINOLONE [Concomitant]
     Active Substance: TRIAMCINOLONE
  14. DUREZOL [Concomitant]
     Active Substance: DIFLUPREDNATE
  15. PRILOSEC [Suspect]
     Active Substance: OMEPRAZOLE MAGNESIUM
     Dosage: GENERIC40.0MG UNKNOWN
     Route: 048
     Dates: start: 20130725
  16. ATORVASTATIN [Concomitant]
     Active Substance: ATORVASTATIN
     Indication: BLOOD CHOLESTEROL
     Dates: start: 20150416, end: 20150517
  17. PERMETHRIN. [Concomitant]
     Active Substance: PERMETHRIN
  18. PIROXICAM. [Concomitant]
     Active Substance: PIROXICAM
  19. CARISOPRODOL. [Concomitant]
     Active Substance: CARISOPRODOL
  20. PREVACID [Suspect]
     Active Substance: LANSOPRAZOLE
     Dosage: GENERIC30.0MG UNKNOWN
     Route: 048
     Dates: start: 20100315
  21. LISINOPRIL. [Concomitant]
     Active Substance: LISINOPRIL
     Indication: HYPERTENSION
     Dates: start: 20080822, end: 20170303
  22. FLUTICASONE. [Concomitant]
     Active Substance: FLUTICASONE
     Indication: NASAL DISORDER
     Dates: start: 20100814
  23. BENZONATATE. [Concomitant]
     Active Substance: BENZONATATE
  24. VIGAMOX [Concomitant]
     Active Substance: MOXIFLOXACIN HYDROCHLORIDE
  25. SYMBICORT [Concomitant]
     Active Substance: BUDESONIDE\FORMOTEROL FUMARATE DIHYDRATE
  26. NEXIUM [Suspect]
     Active Substance: ESOMEPRAZOLE MAGNESIUM
     Indication: GASTROOESOPHAGEAL REFLUX DISEASE
     Dosage: GENERIC
     Route: 065
     Dates: start: 20150225, end: 20150325
  27. PROTONIX [Suspect]
     Active Substance: PANTOPRAZOLE SODIUM
     Route: 065
     Dates: start: 200701, end: 201809
  28. PROTONIX [Suspect]
     Active Substance: PANTOPRAZOLE SODIUM
     Dosage: GENERIC40.0MG UNKNOWN
     Route: 048
     Dates: start: 20160719
  29. CLARITIN [Concomitant]
     Active Substance: LORATADINE
     Indication: MULTIPLE ALLERGIES
     Dates: start: 20100814
  30. ASPIRIN. [Concomitant]
     Active Substance: ASPIRIN
     Dates: start: 20181009
  31. CEPHALEXIN. [Concomitant]
     Active Substance: CEPHALEXIN
  32. IOPHEN [Concomitant]
  33. PENICILLIN [Concomitant]
     Active Substance: PENICILLIN
  34. VOLTAREN [Concomitant]
     Active Substance: DICLOFENAC SODIUM
  35. NEXIUM [Suspect]
     Active Substance: ESOMEPRAZOLE MAGNESIUM
     Indication: GASTROOESOPHAGEAL REFLUX DISEASE
     Route: 048
     Dates: start: 200701, end: 201809
  36. PRILOSEC [Suspect]
     Active Substance: OMEPRAZOLE MAGNESIUM
     Route: 048
     Dates: start: 200701, end: 201809
  37. QUETIAPINE. [Concomitant]
     Active Substance: QUETIAPINE
  38. DIPHENHYDRAMINE. [Concomitant]
     Active Substance: DIPHENHYDRAMINE
  39. ATENOLOL. [Concomitant]
     Active Substance: ATENOLOL
  40. ERYTHROMYCIN. [Concomitant]
     Active Substance: ERYTHROMYCIN
  41. ACETAMINOPHEN. [Concomitant]
     Active Substance: ACETAMINOPHEN
  42. METAXALONE. [Concomitant]
     Active Substance: METAXALONE
  43. CARAFATE [Concomitant]
     Active Substance: SUCRALFATE
  44. VITAMIN C [Concomitant]
     Active Substance: ASCORBIC ACID
  45. LOPERAMIDE [Concomitant]
     Active Substance: LOPERAMIDE
  46. NEXIUM [Suspect]
     Active Substance: ESOMEPRAZOLE MAGNESIUM
     Indication: GASTROOESOPHAGEAL REFLUX DISEASE
     Route: 048
     Dates: start: 20161209
  47. DEXILANT [Suspect]
     Active Substance: DEXLANSOPRAZOLE
     Indication: GASTROOESOPHAGEAL REFLUX DISEASE
     Route: 065
     Dates: start: 200701, end: 201809
  48. PREDNISONE. [Concomitant]
     Active Substance: PREDNISONE
  49. HYDROMORPHONE [Concomitant]
     Active Substance: HYDROMORPHONE
  50. TRAZODONE [Concomitant]
     Active Substance: TRAZODONE HYDROCHLORIDE
  51. NAPROXEN. [Concomitant]
     Active Substance: NAPROXEN
  52. SPIRIVA [Concomitant]
     Active Substance: TIOTROPIUM BROMIDE MONOHYDRATE
  53. COMBIVENT [Concomitant]
     Active Substance: ALBUTEROL SULFATE\IPRATROPIUM BROMIDE
  54. GUAIATUSSIN [Concomitant]
  55. NEXIUM 24HR [Suspect]
     Active Substance: ESOMEPRAZOLE MAGNESIUM
     Route: 048
     Dates: start: 200701, end: 201809
  56. PREVACID 24 HR [Suspect]
     Active Substance: LANSOPRAZOLE
     Indication: GASTROOESOPHAGEAL REFLUX DISEASE
     Route: 065
     Dates: start: 20090909, end: 20091009
  57. OXYCODONE [Concomitant]
     Active Substance: OXYCODONE
     Indication: PAIN
     Dates: start: 20040304, end: 20091226
  58. FAMOTIDINE. [Concomitant]
     Active Substance: FAMOTIDINE
     Dates: start: 2005, end: 2010
  59. FUROSEMIDE. [Concomitant]
     Active Substance: FUROSEMIDE
  60. ALBUTEROL. [Concomitant]
     Active Substance: ALBUTEROL
  61. AZITHROMYCIN ANHYDROUS. [Concomitant]
     Active Substance: AZITHROMYCIN ANHYDROUS
  62. GABAPENTIN. [Concomitant]
     Active Substance: GABAPENTIN
  63. VERAMYST [Concomitant]
     Active Substance: FLUTICASONE FUROATE
  64. IBUPROFEN. [Concomitant]
     Active Substance: IBUPROFEN
  65. ADVAIR DISKUS [Concomitant]
     Active Substance: FLUTICASONE PROPIONATE\SALMETEROL XINAFOATE
  66. DESLORATADINE. [Concomitant]
     Active Substance: DESLORATADINE
  67. VITAMIN D [Concomitant]
     Active Substance: VITAMIN D NOS

REACTIONS (3)
  - Acute kidney injury [Unknown]
  - Renal failure [Unknown]
  - Chronic kidney disease [Not Recovered/Not Resolved]

NARRATIVE: CASE EVENT DATE: 201810
